FAERS Safety Report 7557176-7 (Version None)
Quarter: 2011Q2

REPORT INFORMATION
  Report Type: 
  Country: None (occurrence: None)
  Receive Date: 20110616
  Receipt Date: 20110616
  Transmission Date: 20111010
  Serious: Yes (Other)
  Sender: FDA-Public Use
  Company Number: None

PATIENT
  Age: 17 Year
  Sex: Male
  Weight: 74.8435 kg

DRUGS (2)
  1. VENTOLIN HFA [Suspect]
     Indication: ASTHMA
     Dates: start: 20100711, end: 20110614
  2. PRIMATENE MIST [Concomitant]

REACTIONS (5)
  - CONDITION AGGRAVATED [None]
  - PRESYNCOPE [None]
  - SELF-MEDICATION [None]
  - DYSPNOEA [None]
  - PRODUCT QUALITY ISSUE [None]
